FAERS Safety Report 8143953-0 (Version None)
Quarter: 2012Q1

REPORT INFORMATION
  Report Type: 
  Country: None (occurrence: None)
  Receive Date: 20120217
  Receipt Date: 20120217
  Transmission Date: 20120608
  Serious: No
  Sender: FDA-Public Use
  Company Number: None

PATIENT
  Age: 19 Year
  Sex: Female
  Weight: 56.699 kg

DRUGS (1)
  1. NORGESTREL [Suspect]
     Indication: CONTRACEPTION
     Route: 048
     Dates: start: 20111201, end: 20120101

REACTIONS (6)
  - ABDOMINAL PAIN [None]
  - PRODUCT QUALITY ISSUE [None]
  - MATERNAL EXPOSURE DURING PREGNANCY [None]
  - ECTOPIC PREGNANCY [None]
  - ABORTION SPONTANEOUS [None]
  - PREGNANCY ON ORAL CONTRACEPTIVE [None]
